FAERS Safety Report 24878320 (Version 1)
Quarter: 2025Q1

REPORT INFORMATION
  Report Type: Spontaneous
  Country: US (occurrence: None)
  Receive Date: 20250122
  Receipt Date: 20250122
  Transmission Date: 20250408
  Serious: Yes (Life-Threatening, Hospitalization, Other)
  Sender: FDA-CTU
  Company Number: None

PATIENT
  Age: 42 Year
  Sex: Female
  Weight: 63 kg

DRUGS (1)
  1. PLAN B [Suspect]
     Active Substance: LEVONORGESTREL
     Indication: Uterine cancer
     Dates: start: 2023, end: 20230801

REACTIONS (3)
  - Abdominal pain [None]
  - Heavy menstrual bleeding [None]
  - Uterine cancer [None]

NARRATIVE: CASE EVENT DATE: 20230109
